FAERS Safety Report 25040158 (Version 1)
Quarter: 2025Q1

REPORT INFORMATION
  Report Type: Spontaneous
  Country: FR (occurrence: FR)
  Receive Date: 20250305
  Receipt Date: 20250305
  Transmission Date: 20250408
  Serious: Yes (Other)
  Sender: CHEPLAPHARM
  Company Number: None

PATIENT
  Age: 48 Year
  Sex: Female
  Weight: 97 kg

DRUGS (5)
  1. CLONAZEPAM [Suspect]
     Active Substance: CLONAZEPAM
     Indication: Pain
     Route: 048
  2. NEFOPAM [Suspect]
     Active Substance: NEFOPAM
     Indication: Pain
     Route: 048
  3. OXYCODONE [Suspect]
     Active Substance: OXYCODONE
     Indication: Pain
     Dosage: DAILY DOSE: 200 MILLIGRAM
     Route: 048
     Dates: start: 2014
  4. OXYCODONE [Suspect]
     Active Substance: OXYCODONE
     Indication: Pain
  5. OXYCODONE HYDROCHLORIDE [Suspect]
     Active Substance: OXYCODONE HYDROCHLORIDE
     Indication: Pain
     Dosage: DAILY DOSE: 30 MILLIGRAM
     Dates: start: 2014

REACTIONS (3)
  - Toothache [Not Recovered/Not Resolved]
  - Tooth erosion [Not Recovered/Not Resolved]
  - Off label use [Not Recovered/Not Resolved]
